FAERS Safety Report 9276513 (Version 1)
Quarter: 2012Q4

REPORT INFORMATION
  Report Type: Spontaneous
  Country: CH (occurrence: None)
  Receive Date: 20121109
  Receipt Date: 20121109
  Transmission Date: 20130627
  Serious: Yes (Hospitalization)
  Sender: FDA-Public Use
  Company Number: 2011S1000936

PATIENT
  Age: 65 Year
  Sex: Female

DRUGS (4)
  1. CUBICIN (DAPTOMYCIN) [Suspect]
     Indication: DEVICE RELATED INFECTION
     Route: 042
     Dates: start: 20111205
  2. BILOL [Concomitant]
  3. LORAZEPAM [Concomitant]
  4. LIVIAL [Concomitant]

REACTIONS (6)
  - Injection site extravasation [None]
  - Injection site pain [None]
  - Injection site swelling [None]
  - Injection site pain [None]
  - Haematoma [None]
  - Needle issue [None]
